FAERS Safety Report 9983282 (Version 2)
Quarter: 2014Q2

REPORT INFORMATION
  Report Type: Report from Study
  Country: AU (occurrence: AU)
  Receive Date: 20140307
  Receipt Date: 20140620
  Transmission Date: 20141212
  Serious: Yes (Other)
  Sender: FDA-Public Use
  Company Number: AU-MYLANLABS-2014S1004940

PATIENT
  Age: 34 Year
  Sex: Female

DRUGS (2)
  1. AMNESTEEM CAPSULES [Suspect]
     Dates: start: 201401, end: 20140127
  2. ACCUTANE [Suspect]
     Dates: start: 201401, end: 20140127

REACTIONS (3)
  - Maternal exposure before pregnancy [Not Recovered/Not Resolved]
  - Expired product administered [Recovered/Resolved]
  - Intentional product misuse [Recovered/Resolved]
